FAERS Safety Report 14155848 (Version 1)
Quarter: 2017Q4

REPORT INFORMATION
  Report Type: Report from Study
  Country: US (occurrence: US)
  Receive Date: 20171103
  Receipt Date: 20171103
  Transmission Date: 20180321
  Serious: Yes (Other)
  Sender: FDA-Public Use
  Company Number: US-TEVA-821735ISR

PATIENT
  Sex: Female

DRUGS (1)
  1. CINQAIR [Suspect]
     Active Substance: RESLIZUMAB
     Indication: ASTHMA
     Route: 042
     Dates: start: 20170724

REACTIONS (11)
  - Peripheral coldness [Not Recovered/Not Resolved]
  - Memory impairment [Unknown]
  - Chills [Not Recovered/Not Resolved]
  - Swelling face [Recovered/Resolved]
  - Feeling cold [Not Recovered/Not Resolved]
  - Anxiety [Unknown]
  - Swollen tongue [Recovered/Resolved]
  - Bone pain [Not Recovered/Not Resolved]
  - Feeling of body temperature change [Not Recovered/Not Resolved]
  - Peripheral swelling [Recovered/Resolved]
  - Acne [Recovered/Resolved]
